FAERS Safety Report 14079648 (Version 1)
Quarter: 2017Q4

REPORT INFORMATION
  Report Type: Spontaneous
  Country: FR (occurrence: FR)
  Receive Date: 20171012
  Receipt Date: 20171012
  Transmission Date: 20180321
  Serious: Yes (Other)
  Sender: FDA-Public Use
  Company Number: FR-MERCK KGAA-2029800

PATIENT
  Age: 36 Year
  Sex: Female

DRUGS (1)
  1. NOVOTHYROX [Suspect]
     Active Substance: LEVOTHYROXINE SODIUM
     Indication: HYPOTHYROIDISM
     Route: 048
     Dates: start: 20170415, end: 20170824

REACTIONS (4)
  - Asthenia [Unknown]
  - Chest discomfort [Unknown]
  - Dyspnoea [Unknown]
  - Blood thyroid stimulating hormone normal [Unknown]

NARRATIVE: CASE EVENT DATE: 20170430
